FAERS Safety Report 9707466 (Version 8)
Quarter: 2014Q4

REPORT INFORMATION
  Report Type: Spontaneous
  Country: US (occurrence: US)
  Receive Date: 20131125
  Receipt Date: 20141106
  Transmission Date: 20150529
  Serious: Yes (Hospitalization, Other)
  Sender: FDA-Public Use
  Company Number: US-009507513-1311USA009893

PATIENT
  Sex: Male
  Weight: 95.24 kg

DRUGS (3)
  1. BYETTA [Suspect]
     Active Substance: EXENATIDE
     Indication: TYPE 2 DIABETES MELLITUS
     Dosage: 5 MCG PEN/1.2 ML, QD
     Dates: start: 200712, end: 2011
  2. JANUVIA [Suspect]
     Active Substance: SITAGLIPTIN PHOSPHATE
     Indication: TYPE 2 DIABETES MELLITUS
     Dosage: 100 MG, QD
     Route: 048
     Dates: start: 20091117, end: 20121008
  3. BYDUREON [Suspect]
     Active Substance: EXENATIDE
     Indication: TYPE 2 DIABETES MELLITUS
     Dosage: 2 MG, QW INJECTION
     Dates: start: 20121008, end: 201310

REACTIONS (16)
  - Blood glucose increased [Unknown]
  - Blood potassium decreased [Unknown]
  - Sleep apnoea syndrome [Unknown]
  - Palpitations [Unknown]
  - Drug ineffective [Unknown]
  - Papillary thyroid cancer [Unknown]
  - Thyroidectomy [Unknown]
  - Carotid artery stent insertion [Unknown]
  - Diabetes mellitus inadequate control [Unknown]
  - Fatigue [Unknown]
  - Myocardial ischaemia [Not Recovered/Not Resolved]
  - Coronary artery disease [Unknown]
  - Treatment noncompliance [Recovering/Resolving]
  - Blood calcium decreased [Unknown]
  - Weight increased [Unknown]
  - Blood glucose decreased [Unknown]

NARRATIVE: CASE EVENT DATE: 201110
